FAERS Safety Report 23719797 (Version 1)
Quarter: 2024Q2

REPORT INFORMATION
  Report Type: Spontaneous
  Country: US (occurrence: None)
  Receive Date: 20240408
  Receipt Date: 20240408
  Transmission Date: 20240715
  Serious: No
  Sender: FDA-Public Use
  Company Number: None

PATIENT

DRUGS (1)
  1. CLOTRIMAZOLE [Suspect]
     Active Substance: CLOTRIMAZOLE
     Route: 061

REACTIONS (5)
  - Product label confusion [None]
  - Packaging design issue [None]
  - Product use complaint [None]
  - Physical product label issue [None]
  - Product communication issue [None]
